FAERS Safety Report 7335957-2 (Version None)
Quarter: 2011Q1

REPORT INFORMATION
  Report Type: 
  Country: None (occurrence: None)
  Receive Date: 20110228
  Receipt Date: 20110216
  Transmission Date: 20110831
  Serious: Yes (Disabling)
  Sender: FDA-Public Use
  Company Number: DSA_45030_2011

PATIENT
  Sex: Male

DRUGS (6)
  1. OMEPRAZOLE [Concomitant]
  2. LISINOPRIL [Concomitant]
  3. SYNTARIS [Concomitant]
  4. BUPROPION HCL [Suspect]
     Indication: DEPRESSION
     Dosage: (150 MG QD)
     Dates: start: 20110118
  5. SERETIDE [Concomitant]
  6. CYMBALTA [Concomitant]

REACTIONS (6)
  - COUGH [None]
  - DIZZINESS [None]
  - TERMINAL INSOMNIA [None]
  - FEELING ABNORMAL [None]
  - VERTIGO [None]
  - RESPIRATORY TRACT IRRITATION [None]
